FAERS Safety Report 6153765-5 (Version None)
Quarter: 2009Q2

REPORT INFORMATION
  Report Type: 
  Country: None (occurrence: None)
  Receive Date: 20090410
  Receipt Date: 20090402
  Transmission Date: 20091009
  Serious: Yes (Life-Threatening)
  Sender: FDA-Public Use
  Company Number: APP200900090

PATIENT
  Age: 8 Year
  Sex: Male

DRUGS (9)
  1. HEPARIN SODIUM [Suspect]
     Indication: CARDIOPULMONARY BYPASS
     Dosage: SEE IMAGE
     Route: 040
     Dates: start: 20090204, end: 20090204
  2. HEPARIN SODIUM [Suspect]
     Indication: CARDIOPULMONARY BYPASS
     Dosage: SEE IMAGE
     Route: 040
     Dates: start: 20090204, end: 20090204
  3. HEPARIN SODIUM [Suspect]
     Indication: CARDIOPULMONARY BYPASS
     Dosage: SEE IMAGE
     Route: 040
     Dates: start: 20090204, end: 20090204
  4. HEPARIN SODIUM [Suspect]
     Indication: CARDIOPULMONARY BYPASS
  5. VECURONIUM BROMIDE [Concomitant]
  6. VERSED [Concomitant]
  7. ANCEF [Concomitant]
  8. SEVOFLURANE [Concomitant]
  9. DESFLURANE (DESFLURANE) [Concomitant]

REACTIONS (3)
  - ANAPHYLACTIC REACTION [None]
  - HYPOTENSION [None]
  - LATEX ALLERGY [None]
